FAERS Safety Report 9002136 (Version 1)
Quarter: 2013Q1

REPORT INFORMATION
  Report Type: Spontaneous
  Country: US (occurrence: US)
  Receive Date: 20130107
  Receipt Date: 20130107
  Transmission Date: 20140127
  Serious: No
  Sender: FDA-Public Use
  Company Number: US-BAYER-2013-001430

PATIENT
  Age: 50 Year
  Sex: Female
  Weight: 68.03 kg

DRUGS (4)
  1. ALEVE CAPLET/TABLET,MIDOL EXTENDED RELIEF CAPLET [Suspect]
     Indication: MUSCLE SPASMS
     Dosage: 4 DF, PRN
     Route: 048
  2. THYROID PILL [Concomitant]
  3. MULTIVITAMIN [Concomitant]
  4. METHIMAZOLE [Concomitant]

REACTIONS (2)
  - Expired drug administered [None]
  - Overdose [None]
